FAERS Safety Report 7353921-4 (Version None)
Quarter: 2011Q1

REPORT INFORMATION
  Report Type: 
  Country: None (occurrence: None)
  Receive Date: 20110315
  Receipt Date: 20110301
  Transmission Date: 20110831
  Serious: Yes (Hospitalization)
  Sender: FDA-Public Use
  Company Number: PHHY2011IL17312

PATIENT
  Age: 52 Year
  Sex: Female

DRUGS (2)
  1. GLUCOPHAGE [Concomitant]
  2. SANDOSTATIN LAR [Suspect]
     Indication: CARCINOID TUMOUR
     Dosage: 30 MG, EVERY 28 DAYS
     Dates: start: 20070101, end: 20110131

REACTIONS (1)
  - ASTHENIA [None]
